FAERS Safety Report 7969077-0 (Version None)
Quarter: 2011Q4

REPORT INFORMATION
  Report Type: 
  Country: None (occurrence: None)
  Receive Date: 20111209
  Receipt Date: 20111208
  Transmission Date: 20120403
  Serious: Yes (Other)
  Sender: FDA-Public Use
  Company Number: BR-B.I. PHARMACEUTICALS,INC./RIDGEFIELD-2011-BR-01349BR

PATIENT
  Age: 58 Year
  Sex: Female

DRUGS (9)
  1. GRICORP [Concomitant]
     Indication: DIABETES MELLITUS
  2. DUOVENT N [Suspect]
     Indication: ASTHMA
     Route: 055
     Dates: start: 20110801, end: 20111001
  3. MAGNEM [Concomitant]
     Indication: OSTEOPOROSIS
  4. NERVEN [Concomitant]
     Indication: MUSCLE SPASMS
  5. VYLIUN [Concomitant]
     Indication: ABDOMINAL DISCOMFORT
  6. CLORIDRATO DE METFORMINA [Concomitant]
     Indication: DIABETES MELLITUS
  7. ISOSORBIDE MONONITRATE [Concomitant]
     Indication: ANGINA PECTORIS
  8. COMBIVENT [Suspect]
     Indication: ASTHMA
     Route: 055
     Dates: start: 20111101
  9. DILTIAZEM [Concomitant]
     Indication: ANGINA PECTORIS

REACTIONS (4)
  - BLOOD PRESSURE INCREASED [None]
  - COUGH [None]
  - DRY MOUTH [None]
  - DRUG INEFFECTIVE [None]
